FAERS Safety Report 24539827 (Version 1)
Quarter: 2024Q4

REPORT INFORMATION
  Report Type: Spontaneous
  Country: DK (occurrence: DK)
  Receive Date: 20241023
  Receipt Date: 20241023
  Transmission Date: 20250115
  Serious: Yes (Hospitalization, Other)
  Sender: SANDOZ
  Company Number: DK-NOVPHSZ-PHHY2019DK045949

PATIENT
  Age: 67 Year
  Sex: Female

DRUGS (7)
  1. FASLODEX [Suspect]
     Active Substance: FULVESTRANT
     Indication: Breast cancer
     Dosage: 500 MG, Q4W (STYRKE: 250 MG/5 ML)
     Route: 030
     Dates: start: 201705, end: 20180629
  2. FULVESTRANT [Suspect]
     Active Substance: FULVESTRANT
     Indication: Breast cancer
     Dosage: 500 MG, Q4W (STYRKE: 250 MG)
     Route: 030
     Dates: start: 20180727, end: 20190211
  3. IBRANCE [Suspect]
     Active Substance: PALBOCICLIB
     Indication: Breast cancer
     Dosage: 125 MG, UNK
     Route: 048
     Dates: start: 201705, end: 20190211
  4. IBUPROFEN [Concomitant]
     Active Substance: IBUPROFEN
     Indication: Pain
     Dosage: 1200 MG, QD (STYRKE: 400 MG)
     Route: 048
     Dates: start: 20190122
  5. ACETAMINOPHEN [Concomitant]
     Active Substance: ACETAMINOPHEN
     Indication: Pain
     Dosage: 1000 MG, (STYRKE: 500 MG)
     Route: 048
  6. AMDINOCILLIN PIVOXIL [Concomitant]
     Active Substance: AMDINOCILLIN PIVOXIL
     Indication: Cystitis
     Dosage: 1200 MG, QD (STYRKE: 400 MG)
     Route: 048
     Dates: start: 20190122
  7. TRAMADOL [Concomitant]
     Active Substance: TRAMADOL
     Indication: Pain
     Dosage: 50 MG, (STYRKE: 50 MG)
     Route: 048

REACTIONS (12)
  - Peripheral artery thrombosis [Recovering/Resolving]
  - Aortic thrombosis [Recovering/Resolving]
  - Mesenteric artery thrombosis [Recovering/Resolving]
  - Coordination abnormal [Unknown]
  - Skin discolouration [Unknown]
  - Muscular weakness [Unknown]
  - Gait disturbance [Unknown]
  - Blood creatinine increased [Recovered/Resolved]
  - Glomerular filtration rate decreased [Recovered/Resolved]
  - Blood lactate dehydrogenase increased [Recovering/Resolving]
  - Aspartate aminotransferase increased [Recovering/Resolving]
  - Pain in extremity [Not Recovered/Not Resolved]

NARRATIVE: CASE EVENT DATE: 20190101
